FAERS Safety Report 4703805-2 (Version None)
Quarter: 2005Q2

REPORT INFORMATION
  Report Type: 
  Country: None (occurrence: None)
  Receive Date: 20050629
  Receipt Date: 20050629
  Transmission Date: 20051028
  Serious: Yes (Hospitalization, Disabling)
  Sender: FDA-Public Use
  Company Number: None

PATIENT
  Age: 43 Year
  Sex: Male
  Weight: 72.5755 kg

DRUGS (1)
  1. ALTACE [Suspect]
     Indication: HYPERTENSION
     Dosage: 2.5MG   ONCE A DAY   ORAL
     Route: 048
     Dates: start: 20040826, end: 20050115

REACTIONS (26)
  - ABNORMAL BEHAVIOUR [None]
  - ABNORMAL DREAMS [None]
  - ANXIETY [None]
  - CHEST PAIN [None]
  - CONFUSIONAL STATE [None]
  - DECREASED APPETITE [None]
  - DEPRESSION [None]
  - DISTURBANCE IN ATTENTION [None]
  - DIZZINESS [None]
  - DRUG DEPENDENCE [None]
  - DRUG DOSE OMISSION [None]
  - DYSPNOEA [None]
  - EUPHORIC MOOD [None]
  - FATIGUE [None]
  - FEELING OF DESPAIR [None]
  - HEADACHE [None]
  - INCORRECT DRUG ADMINISTRATION RATE [None]
  - IRRITABILITY [None]
  - LIBIDO INCREASED [None]
  - MARITAL PROBLEM [None]
  - NIGHTMARE [None]
  - OBSESSIVE-COMPULSIVE DISORDER [None]
  - PSYCHOMOTOR HYPERACTIVITY [None]
  - PSYCHOTIC DISORDER [None]
  - RESTLESSNESS [None]
  - SPORTS INJURY [None]
